FAERS Safety Report 12910282 (Version 3)
Quarter: 2020Q4

REPORT INFORMATION
  Report Type: Spontaneous
  Country: US (occurrence: US)
  Receive Date: 20161104
  Receipt Date: 20201104
  Transmission Date: 20210113
  Serious: Yes (Hospitalization)
  Sender: FDA-Public Use
  Company Number: US-JNJFOC-20160922005

PATIENT
  Age: 42 Year
  Sex: Female
  Weight: 92.7 kg

DRUGS (2)
  1. XARELTO [Suspect]
     Active Substance: RIVAROXABAN
     Indication: PULMONARY THROMBOSIS
     Dosage: VARYING DOSES OF 10, 15 AND 20 MG
     Route: 048
     Dates: start: 20130518, end: 201310
  2. XARELTO [Suspect]
     Active Substance: RIVAROXABAN
     Dosage: VARYING DOSES OF 10, 15 AND 20 MG
     Route: 048
     Dates: end: 201404

REACTIONS (2)
  - Vaginal haemorrhage [Recovering/Resolving]
  - Menorrhagia [Recovering/Resolving]

NARRATIVE: CASE EVENT DATE: 20131010
